FAERS Safety Report 6257631-6 (Version None)
Quarter: 2009Q3

REPORT INFORMATION
  Report Type: 
  Country: None (occurrence: None)
  Receive Date: 20090706
  Receipt Date: 20090625
  Transmission Date: 20100115
  Serious: Yes (Hospitalization)
  Sender: FDA-Public Use
  Company Number: FR-SANOFI-SYNTHELABO-A02200901646

PATIENT
  Sex: Male

DRUGS (3)
  1. TAHOR [Concomitant]
     Indication: DRUG USE FOR UNKNOWN INDICATION
     Route: 048
  2. KARDEGIC [Suspect]
     Indication: ISCHAEMIC CARDIOMYOPATHY
     Route: 065
  3. PLAVIX [Suspect]
     Indication: ISCHAEMIC CARDIOMYOPATHY
     Route: 048

REACTIONS (3)
  - ANAEMIA [None]
  - DUODENITIS [None]
  - MELAENA [None]
